FAERS Safety Report 10088805 (Version 1)
Quarter: 2014Q2

REPORT INFORMATION
  Report Type: Spontaneous
  Country: NL (occurrence: NL)
  Receive Date: 20140421
  Receipt Date: 20140421
  Transmission Date: 20141212
  Serious: Yes (Other)
  Sender: FDA-Public Use
  Company Number: NL-TEVA-475202ISR

PATIENT
  Sex: Female

DRUGS (1)
  1. AMITRIPTYLINE 25 MG [Suspect]

REACTIONS (2)
  - Laryngeal injury [Unknown]
  - Oral administration complication [Unknown]
